FAERS Safety Report 21007655 (Version 1)
Quarter: 2022Q2

REPORT INFORMATION
  Report Type: Spontaneous
  Country: US (occurrence: US)
  Receive Date: 20220627
  Receipt Date: 20220627
  Transmission Date: 20220720
  Serious: Yes (Other)
  Sender: FDA-Public Use
  Company Number: US-BRISTOL-MYERS SQUIBB COMPANY-2022-056510

PATIENT
  Age: 78 Year
  Sex: Male
  Weight: 75.75 kg

DRUGS (6)
  1. ELIQUIS [Suspect]
     Active Substance: APIXABAN
     Indication: Product used for unknown indication
     Route: 065
  2. VYNDAMAX [Suspect]
     Active Substance: TAFAMIDIS
     Indication: Amyloidosis
     Dosage: IN MORNING
     Route: 048
     Dates: start: 202203
  3. HYDROXYCHLOROQUINE [Suspect]
     Active Substance: HYDROXYCHLOROQUINE
     Indication: Product used for unknown indication
     Dosage: ALONG WITH FOOD
     Route: 048
  4. METOPROLOL [Concomitant]
     Active Substance: METOPROLOL
     Indication: Product used for unknown indication
     Route: 065
  5. FUROSEMIDE [Concomitant]
     Active Substance: FUROSEMIDE
     Indication: Polyuria
     Route: 048
  6. FUROSEMIDE [Concomitant]
     Active Substance: FUROSEMIDE
     Route: 048

REACTIONS (17)
  - Drug ineffective [Unknown]
  - Intracardiac thrombus [Unknown]
  - Cardiac amyloidosis [Unknown]
  - Constipation [Recovered/Resolved]
  - Generalised oedema [Unknown]
  - Weight decreased [Unknown]
  - Muscle atrophy [Unknown]
  - Arrhythmia [Unknown]
  - Cerebrovascular accident [Recovered/Resolved]
  - Cardiomyopathy [Unknown]
  - Cerebral thrombosis [Unknown]
  - Renal vascular thrombosis [Unknown]
  - Anxiety disorder [Unknown]
  - Fatigue [Unknown]
  - COVID-19 [Unknown]
  - Insomnia [Recovered/Resolved]
  - Eczema [Unknown]

NARRATIVE: CASE EVENT DATE: 20180101
